FAERS Safety Report 25384658 (Version 2)
Quarter: 2025Q2

REPORT INFORMATION
  Report Type: Spontaneous
  Country: IN (occurrence: IN)
  Receive Date: 20250602
  Receipt Date: 20250604
  Transmission Date: 20250716
  Serious: Yes (Death, Life-Threatening, Other)
  Sender: PFIZER
  Company Number: IN-MLMSERVICE-20250527-PI518828-00128-1

PATIENT
  Age: 29 Year
  Sex: Male

DRUGS (4)
  1. DOXORUBICIN HYDROCHLORIDE [Suspect]
     Active Substance: DOXORUBICIN HYDROCHLORIDE
     Indication: Synovial sarcoma metastatic
  2. DOXORUBICIN HYDROCHLORIDE [Suspect]
     Active Substance: DOXORUBICIN HYDROCHLORIDE
     Indication: Metastases to bone
  3. IFOSFAMIDE [Suspect]
     Active Substance: IFOSFAMIDE
     Indication: Synovial sarcoma metastatic
  4. IFOSFAMIDE [Suspect]
     Active Substance: IFOSFAMIDE
     Indication: Metastases to bone

REACTIONS (1)
  - Pneumonia [Fatal]
